FAERS Safety Report 5894474-7 (Version None)
Quarter: 2008Q3

REPORT INFORMATION
  Report Type: 
  Country: None (occurrence: None)
  Receive Date: 20080923
  Receipt Date: 20080923
  Transmission Date: 20090109
  Serious: Yes (Other)
  Sender: FDA-Public Use
  Company Number: None

PATIENT
  Sex: Female

DRUGS (3)
  1. 3M ESPE PERIOMED 0.63% STANNOUS FLOURIDE ORAL RINSE CONCENTRATE, MINT [Suspect]
     Indication: DRUG USE FOR UNKNOWN INDICATION
     Route: 061
     Dates: start: 20061128, end: 20061214
  2. 3M ESPE PERIOMED 0.63% STANNOUS FLOURIDE ORAL RINSE CONCENTRATE, MINT [Suspect]
     Indication: DRUG USE FOR UNKNOWN INDICATION
     Route: 061
     Dates: start: 20070112, end: 20070301
  3. VICODIN [Concomitant]

REACTIONS (6)
  - BLINDNESS TRANSIENT [None]
  - PAIN [None]
  - SENSITIVITY OF TEETH [None]
  - SLEEP DISORDER [None]
  - THERAPEUTIC AGENT TOXICITY [None]
  - TREMOR [None]
